FAERS Safety Report 6918773-2 (Version None)
Quarter: 2010Q3

REPORT INFORMATION
  Report Type: 
  Country: None (occurrence: None)
  Receive Date: 20100811
  Receipt Date: 20100709
  Transmission Date: 20110219
  Serious: No
  Sender: FDA-Public Use
  Company Number: US-BAYER-201018189BCC

PATIENT
  Age: 88 Year
  Sex: Male
  Weight: 72 kg

DRUGS (4)
  1. ALEVE (CAPLET) [Suspect]
     Indication: PAIN
     Dosage: TOTAL DAILY DOSE: 440 MG  UNIT DOSE: 220 MG
     Route: 048
     Dates: start: 20100708
  2. FOLIC ACID [Concomitant]
     Route: 065
  3. ASPIRIN [Concomitant]
     Route: 065
  4. CILOSTAZOL [Concomitant]
     Route: 065

REACTIONS (1)
  - THROAT IRRITATION [None]
